FAERS Safety Report 14369445 (Version 2)
Quarter: 2019Q3

REPORT INFORMATION
  Report Type: Report from Study
  Country: US (occurrence: US)
  Receive Date: 20180110
  Receipt Date: 20190801
  Transmission Date: 20191004
  Serious: Yes (Death)
  Sender: FDA-Public Use
  Company Number: US-VIFOR (INTERNATIONAL) INC.-VIT-2017-14525

PATIENT
  Age: 60 Year
  Sex: Female

DRUGS (28)
  1. VELTASSA [Suspect]
     Active Substance: PATIROMER
     Indication: HYPERKALAEMIA
     Route: 048
     Dates: start: 20160804
  2. NADOLOL. [Concomitant]
     Active Substance: NADOLOL
  3. OMEPRAZOLE. [Concomitant]
     Active Substance: OMEPRAZOLE
  4. LINZESS [Concomitant]
     Active Substance: LINACLOTIDE
  5. ISOSORBIDE MONONITRATE. [Concomitant]
     Active Substance: ISOSORBIDE MONONITRATE
  6. CALCITRIOL. [Concomitant]
     Active Substance: CALCITRIOL
  7. NADOLOL. [Concomitant]
     Active Substance: NADOLOL
  8. ALENDRONATE [Concomitant]
     Active Substance: ALENDRONATE SODIUM
  9. GENERLAC [Concomitant]
     Active Substance: LACTULOSE
     Dosage: 10G/15ML
  10. METHOCARBAMOL. [Concomitant]
     Active Substance: METHOCARBAMOL
  11. ASPIRIN. [Concomitant]
     Active Substance: ASPIRIN
  12. HUMALOG [Concomitant]
     Active Substance: INSULIN LISPRO
  13. TRESIBA [Concomitant]
     Active Substance: INSULIN DEGLUDEC
  14. ONE TOUCH [Concomitant]
     Active Substance: DEXTROSE
  15. ROSUVASTATIN. [Concomitant]
     Active Substance: ROSUVASTATIN
  16. DULCOLAX NOS [Concomitant]
     Active Substance: BISACODYL OR DOCUSATE SODIUM
  17. REGLAN [Concomitant]
     Active Substance: METOCLOPRAMIDE HYDROCHLORIDE
  18. RENVELA [Concomitant]
     Active Substance: SEVELAMER CARBONATE
  19. VITAMIN D [Concomitant]
     Active Substance: VITAMIN D NOS
  20. LOSARTAN POTASSIUM. [Concomitant]
     Active Substance: LOSARTAN POTASSIUM
  21. NIFEDIPINE. [Concomitant]
     Active Substance: NIFEDIPINE
  22. SENSIPAR [Concomitant]
     Active Substance: CINACALCET HYDROCHLORIDE
  23. DOCQLAX [Concomitant]
     Active Substance: DOCUSATE SODIUM\SENNOSIDES
  24. CRESTOR [Concomitant]
     Active Substance: ROSUVASTATIN CALCIUM
  25. OMEPRAZOLE. [Concomitant]
     Active Substance: OMEPRAZOLE
  26. ALBUTEROL. [Concomitant]
     Active Substance: ALBUTEROL
  27. MIRALAX [Concomitant]
     Active Substance: POLYETHYLENE GLYCOL 3350
     Dosage: 3350 NF
  28. CLONIDINE. [Concomitant]
     Active Substance: CLONIDINE

REACTIONS (1)
  - Death [Fatal]

NARRATIVE: CASE EVENT DATE: 20171218
